FAERS Safety Report 9219126 (Version 2)
Quarter: 2013Q2

REPORT INFORMATION
  Report Type: Spontaneous
  Country: US (occurrence: None)
  Receive Date: 20130404
  Receipt Date: 20130404
  Transmission Date: 20140414
  Serious: Yes (Other)
  Sender: FDA-Public Use
  Company Number: SYM-2013-02461

PATIENT
  Sex: 0

DRUGS (1)
  1. FLUOROURACIL [Suspect]
     Indication: GASTROINTESTINAL CARCINOMA

REACTIONS (2)
  - Cardiotoxicity [None]
  - Chest pain [None]
